FAERS Safety Report 9613068 (Version 2)
Quarter: 2014Q1

REPORT INFORMATION
  Report Type: Spontaneous
  Country: GB (occurrence: GB)
  Receive Date: 20131010
  Receipt Date: 20140317
  Transmission Date: 20141002
  Serious: Yes (Hospitalization, Other)
  Sender: FDA-Public Use
  Company Number: GB-ACTAVIS-2013-18123

PATIENT
  Age: 70 Year
  Sex: Male
  Weight: 73 kg

DRUGS (3)
  1. INDAPAMIDE (UNKNOWN) [Suspect]
     Indication: CEREBROVASCULAR ACCIDENT
     Dosage: 2.5 MG, DAILY
     Route: 048
     Dates: start: 20130226, end: 20130303
  2. PERINDOPRIL [Concomitant]
     Indication: PRODUCT USED FOR UNKNOWN INDICATION
     Dosage: UNK
     Route: 065
  3. PENTASA [Concomitant]
     Indication: PRODUCT USED FOR UNKNOWN INDICATION
     Dosage: UNK
     Route: 065

REACTIONS (2)
  - Convulsion [Recovered/Resolved with Sequelae]
  - Hyponatraemia [Recovered/Resolved]
